FAERS Safety Report 4833909-5 (Version None)
Quarter: 2005Q4

REPORT INFORMATION
  Report Type: 
  Country: None (occurrence: None)
  Receive Date: 20051118
  Receipt Date: 20051107
  Transmission Date: 20060501
  Serious: Yes (Other)
  Sender: FDA-Public Use
  Company Number: 2005S1000239

PATIENT
  Age: 49 Year
  Sex: Male
  Weight: 107 kg

DRUGS (5)
  1. CUBICIN [Suspect]
     Indication: ENDOCARDITIS ENTEROCOCCAL
     Dosage: 6 MG/KG; IV
     Route: 042
     Dates: start: 20051022
  2. METRONIDAZOLE [Concomitant]
  3. LEVAQUIN [Concomitant]
  4. DIURETICS [Concomitant]
  5. VANCOMYCIN [Concomitant]

REACTIONS (3)
  - DYSPNOEA [None]
  - HYPOKALAEMIA [None]
  - ILEUS [None]
